FAERS Safety Report 10516995 (Version 1)
Quarter: 2014Q4

REPORT INFORMATION
  Report Type: Spontaneous
  Country: CA (occurrence: CA)
  Receive Date: 20141014
  Receipt Date: 20141014
  Transmission Date: 20150528
  Serious: Yes (Other)
  Sender: FDA-Public Use
  Company Number: CA-ASTELLAS-2014US014384

PATIENT
  Sex: Male

DRUGS (2)
  1. ADVAGRAF [Suspect]
     Active Substance: TACROLIMUS
     Indication: RENAL TRANSPLANT
     Route: 048
     Dates: start: 201404, end: 201410
  2. ADVAGRAF [Suspect]
     Active Substance: TACROLIMUS
     Route: 048
     Dates: start: 20141002

REACTIONS (1)
  - Immunosuppressant drug level increased [Unknown]
